FAERS Safety Report 12524795 (Version 1)
Quarter: 2016Q3

REPORT INFORMATION
  Report Type: Spontaneous
  Country: HU (occurrence: HU)
  Receive Date: 20160704
  Receipt Date: 20160704
  Transmission Date: 20161109
  Serious: Yes (Other)
  Sender: FDA-Public Use
  Company Number: HU-PFIZER INC-2016324403

PATIENT
  Sex: Female

DRUGS (1)
  1. TREXAN [Suspect]
     Active Substance: METHOTREXATE SODIUM
     Indication: SYSTEMIC LUPUS ERYTHEMATOSUS
     Dosage: UNK
     Route: 065
     Dates: start: 200612, end: 200712

REACTIONS (2)
  - Leukopenia [Recovered/Resolved]
  - Crohn^s disease [Recovered/Resolved]
